FAERS Safety Report 8831531 (Version 2)
Quarter: 2012Q4

REPORT INFORMATION
  Report Type: 
  Country: US (occurrence: US)
  Receive Date: 20121009
  Receipt Date: 20121012
  Transmission Date: 20130627
  Serious: Yes (Other)
  Sender: FDA-Public Use
  Company Number: US-ROCHE-1136613

PATIENT
  Age: 59 Year
  Sex: Male

DRUGS (13)
  1. RITUXAN [Suspect]
     Indication: WALDENSTROM^S MACROGLOBULINAEMIA RECURRENT
     Route: 042
     Dates: start: 20110824, end: 20120529
  2. CYTOXAN [Suspect]
     Indication: WALDENSTROM^S MACROGLOBULINAEMIA RECURRENT
     Route: 048
     Dates: start: 20120213, end: 20120529
  3. CLADRIBINE [Suspect]
     Indication: WALDENSTROM^S MACROGLOBULINAEMIA RECURRENT
     Route: 042
     Dates: start: 20070924, end: 20080215
  4. AMLODIPINE BESILATE [Concomitant]
     Route: 048
  5. LORATADINE [Concomitant]
     Route: 065
  6. METOPROLOL TARTRATE [Concomitant]
     Dosage: 1/2 tablet twice daily
     Route: 048
  7. OXYCODONE HCL [Concomitant]
  8. FAMOTIDINE [Concomitant]
     Route: 048
  9. PROCHLORPERAZINE MALEATE [Concomitant]
     Dosage: as needed
     Route: 048
  10. THIAMINE HCL [Concomitant]
     Route: 048
  11. CEPHALEXIN [Concomitant]
     Route: 048
  12. ONDANSETRON HCL [Concomitant]
     Dosage: 1 tablet twice daily for 4 days with chemotherapy as directed
     Route: 065
  13. DEXAMETHASONE [Concomitant]
     Dosage: twice daily for 3 days after chemotherapy
     Route: 048

REACTIONS (1)
  - Malignant nervous system neoplasm [Not Recovered/Not Resolved]
